FAERS Safety Report 18464326 (Version 2)
Quarter: 2022Q1

REPORT INFORMATION
  Report Type: Spontaneous
  Country: CN (occurrence: CN)
  Receive Date: 20201104
  Receipt Date: 20220130
  Transmission Date: 20220424
  Serious: Yes (Other)
  Sender: FDA-Public Use
  Company Number: CN-JAZZ-2019-CN-016792

PATIENT
  Age: 9 Year
  Sex: Female

DRUGS (1)
  1. DEFIBROTIDE [Suspect]
     Active Substance: DEFIBROTIDE (BOVINE)
     Indication: Haemophagocytic lymphohistiocytosis
     Dosage: 6.25 MILLIGRAM/KILOGRAM, QID

REACTIONS (3)
  - Haemorrhage [Recovered/Resolved]
  - Seizure [Recovered/Resolved]
  - Off label use [Unknown]
